FAERS Safety Report 20110913 (Version 2)
Quarter: 2021Q4

REPORT INFORMATION
  Report Type: Spontaneous
  Country: MX (occurrence: MX)
  Receive Date: 20211124
  Receipt Date: 20211214
  Transmission Date: 20220304
  Serious: Yes (Death, Other)
  Sender: FDA-Public Use
  Company Number: MX-SA-SAC20211123000842

PATIENT
  Age: 54 Year
  Sex: Female
  Weight: 85 kg

DRUGS (3)
  1. SARCLISA [Suspect]
     Active Substance: ISATUXIMAB-IRFC
     Indication: Plasma cell myeloma
     Dosage: 800 MG
     Route: 042
     Dates: start: 20211027
  2. SARCLISA [Suspect]
     Active Substance: ISATUXIMAB-IRFC
     Dosage: 800 MG
     Route: 042
     Dates: start: 20211103
  3. SARCLISA [Suspect]
     Active Substance: ISATUXIMAB-IRFC
     Dosage: 800 MG
     Route: 042
     Dates: start: 20211110, end: 20211110

REACTIONS (1)
  - Acute myocardial infarction [Fatal]

NARRATIVE: CASE EVENT DATE: 20211113
